FAERS Safety Report 17369954 (Version 11)
Quarter: 2021Q1

REPORT INFORMATION
  Report Type: Report from Study
  Country: None (occurrence: BE)
  Receive Date: 20200205
  Receipt Date: 20210330
  Transmission Date: 20210419
  Serious: Yes (Other)
  Sender: FDA-Public Use
  Company Number: BE-ABBVIE-20K-013-3260543-00

PATIENT
  Age: 80 Year
  Sex: Female
  Weight: 56 kg

DRUGS (13)
  1. DUODOPA [Suspect]
     Active Substance: CARBIDOPA\LEVODOPA
     Dosage: MD=9ML, CD=2.9ML/HR DURING 16HRS, ED=3ML
     Route: 050
     Dates: start: 20200311, end: 20200904
  2. DUODOPA [Suspect]
     Active Substance: CARBIDOPA\LEVODOPA
     Dosage: MD=11.5ML, CD=3.1ML/HR DURING 16HRS, ED=3.5ML
     Route: 050
     Dates: start: 20200915, end: 20200917
  3. DUODOPA [Suspect]
     Active Substance: CARBIDOPA\LEVODOPA
     Dosage: MD= 11.5 ML, CD= 3.1 ML/HR DURING 16HRS, ED= 3.5 ML
     Route: 050
     Dates: start: 20200917, end: 20201030
  4. DUODOPA [Suspect]
     Active Substance: CARBIDOPA\LEVODOPA
     Dosage: MD=10 ML, CD=2.9 ML/HR DURING 16HOURS, ED=3ML
     Route: 050
     Dates: start: 20200227, end: 20200303
  5. DUODOPA [Suspect]
     Active Substance: CARBIDOPA\LEVODOPA
     Dosage: MD=11ML, CD=3.1ML/HR DURING 16HRS, ED=3.5ML
     Route: 050
     Dates: start: 20200904, end: 20200915
  6. KEPPRA [Concomitant]
     Active Substance: LEVETIRACETAM
     Indication: PRODUCT USED FOR UNKNOWN INDICATION
     Route: 048
  7. DUODOPA [Suspect]
     Active Substance: CARBIDOPA\LEVODOPA
     Dosage: MD=9ML, CD=2.4ML/HR DURING 16HRS, ED=3ML
     Route: 050
     Dates: start: 20190128, end: 20190621
  8. DUODOPA [Suspect]
     Active Substance: CARBIDOPA\LEVODOPA
     Dosage: MD=9ML, CD=2.7ML/HR DURING 16HRS, ED=3ML
     Route: 050
     Dates: start: 20190621, end: 20200227
  9. DUODOPA [Suspect]
     Active Substance: CARBIDOPA\LEVODOPA
     Indication: PARKINSON^S DISEASE
     Route: 050
     Dates: start: 20150928, end: 20190128
  10. DAFALGAN [Concomitant]
     Active Substance: ACETAMINOPHEN
     Indication: PRODUCT USED FOR UNKNOWN INDICATION
     Dosage: DURING THE DAY
     Route: 048
  11. ASAFLOW [Concomitant]
     Active Substance: ASPIRIN
     Indication: PRODUCT USED FOR UNKNOWN INDICATION
     Route: 048
  12. DUODOPA [Suspect]
     Active Substance: CARBIDOPA\LEVODOPA
     Dosage: MD=10ML, CD=3.2ML/HR DURING 16HRS, ED=3ML
     Route: 050
     Dates: start: 20200303, end: 20200311
  13. DUODOPA [Suspect]
     Active Substance: CARBIDOPA\LEVODOPA
     Dosage: MD= 11.5 ML, CD= 2.9 ML/HR DURING 16HRS, ED= 3.5 ML
     Route: 050
     Dates: start: 20201030

REACTIONS (11)
  - Neuralgia [Unknown]
  - Freezing phenomenon [Not Recovered/Not Resolved]
  - Stoma site discharge [Unknown]
  - Toe amputation [Unknown]
  - Stoma site erythema [Recovering/Resolving]
  - Localised infection [Unknown]
  - Polyneuropathy [Unknown]
  - Dyskinesia [Recovering/Resolving]
  - Therapeutic product effect incomplete [Unknown]
  - Gait disturbance [Unknown]
  - Stoma site haemorrhage [Unknown]

NARRATIVE: CASE EVENT DATE: 20210118
